FAERS Safety Report 8821464 (Version 1)
Quarter: 2012Q4

REPORT INFORMATION
  Report Type: 
  Country: None (occurrence: None)
  Receive Date: 20121002
  Receipt Date: 20121002
  Transmission Date: 20130627
  Serious: Yes (Other)
  Sender: FDA-Public Use
  Company Number: PHHY2012RS083149

PATIENT
  Age: 60 Year
  Sex: Female

DRUGS (3)
  1. METHOTREXATE [Suspect]
     Dosage: 1.7 g, UNK
     Route: 042
  2. METHOTREXATE [Suspect]
     Route: 037
  3. DEXAMETHASONE [Concomitant]

REACTIONS (4)
  - Diabetes insipidus [Recovering/Resolving]
  - Polyuria [Recovering/Resolving]
  - Polydipsia [Recovering/Resolving]
  - Pyrexia [Not Recovered/Not Resolved]
